FAERS Safety Report 10873973 (Version 1)
Quarter: 2015Q1

REPORT INFORMATION
  Report Type: Report from Study
  Country: US (occurrence: US)
  Receive Date: 20150227
  Receipt Date: 20150227
  Transmission Date: 20150721
  Serious: No
  Sender: FDA-Public Use
  Company Number: US-ABBVIE-14P-163-1205599-00

PATIENT
  Sex: Female

DRUGS (1)
  1. ANDROGEL [Suspect]
     Active Substance: TESTOSTERONE
     Indication: EXPOSURE VIA PARTNER
     Dates: start: 2004

REACTIONS (2)
  - Hair growth abnormal [Not Recovered/Not Resolved]
  - Accidental exposure to product [Not Recovered/Not Resolved]
